FAERS Safety Report 6220396-8 (Version None)
Quarter: 2009Q2

REPORT INFORMATION
  Report Type: 
  Country: None (occurrence: None)
  Receive Date: 20090610
  Receipt Date: 20090605
  Transmission Date: 20091009
  Serious: Yes (Hospitalization, Disabling, Other)
  Sender: FDA-Public Use
  Company Number: CH-BRISTOL-MYERS SQUIBB COMPANY-14629034

PATIENT
  Age: 68 Year
  Sex: Female

DRUGS (11)
  1. IXEMPRA KIT [Suspect]
     Indication: BREAST CANCER
     Dosage: INITIAL DOSE OF 10 MG INTRAVENOUS (IV) IXABEPILONE AS MONOTHERAPY GIVEN OVER 3 HOURS ON 21APR09.
     Route: 042
     Dates: start: 20090515, end: 20090515
  2. IXEMPRA KIT [Suspect]
     Indication: BREAST CANCER METASTATIC
     Dosage: INITIAL DOSE OF 10 MG INTRAVENOUS (IV) IXABEPILONE AS MONOTHERAPY GIVEN OVER 3 HOURS ON 21APR09.
     Route: 042
     Dates: start: 20090515, end: 20090515
  3. DEANXIT [Concomitant]
  4. AXOTIDE [Concomitant]
  5. SERETIDE [Concomitant]
  6. NORVASC [Concomitant]
  7. DIOVAN [Concomitant]
  8. MS CONTIN [Concomitant]
  9. LAXOBERON [Concomitant]
  10. FRAXIFORTE [Concomitant]
  11. CIPRALEX [Concomitant]

REACTIONS (3)
  - DEAFNESS BILATERAL [None]
  - GASTROINTESTINAL DISORDER [None]
  - NAUSEA [None]
